FAERS Safety Report 13112075 (Version 1)
Quarter: 2017Q1

REPORT INFORMATION
  Report Type: Other
  Country: FR (occurrence: FR)
  Receive Date: 20170113
  Receipt Date: 20170113
  Transmission Date: 20170428
  Serious: Yes (Hospitalization, Other)
  Sender: FDA-Public Use
  Company Number: FR-APOTEX-2017AP005734

PATIENT
  Age: 71 Year
  Sex: Male

DRUGS (7)
  1. PAXIL [Suspect]
     Active Substance: PAROXETINE HYDROCHLORIDE
     Indication: PRODUCT USED FOR UNKNOWN INDICATION
     Dosage: 21 DF, SINGLE
     Route: 048
     Dates: start: 201406, end: 201406
  2. STRESAM [Suspect]
     Active Substance: ETIFOXINE
     Indication: PRODUCT USED FOR UNKNOWN INDICATION
     Dosage: 40 DF, SINGLE
     Route: 048
     Dates: start: 201406, end: 201406
  3. LAMALINE                           /00764901/ [Suspect]
     Active Substance: ACETAMINOPHEN\BELLADONNA LEAF\CAFFEINE\MORPHINE
     Indication: PRODUCT USED FOR UNKNOWN INDICATION
     Dosage: 16 DF, SINGLE
     Route: 048
     Dates: start: 201406, end: 201406
  4. SPIFEN [Suspect]
     Active Substance: IBUPROFEN
     Indication: PRODUCT USED FOR UNKNOWN INDICATION
     Dosage: 50 DF, SINGLE
     Route: 048
     Dates: start: 201406, end: 201406
  5. BISOPROLOL [Suspect]
     Active Substance: BISOPROLOL
     Indication: PRODUCT USED FOR UNKNOWN INDICATION
     Dosage: 21 DF, SINGLE
     Route: 048
     Dates: start: 201406, end: 201406
  6. PRADAXA [Suspect]
     Active Substance: DABIGATRAN ETEXILATE MESYLATE
     Indication: PRODUCT USED FOR UNKNOWN INDICATION
     Dosage: 8 DF, U
     Route: 048
     Dates: start: 201406, end: 201406
  7. AMIODARONE [Suspect]
     Active Substance: AMIODARONE
     Indication: PRODUCT USED FOR UNKNOWN INDICATION
     Dosage: 40 DF, SINGLE
     Route: 048
     Dates: start: 201406, end: 201406

REACTIONS (9)
  - Hepatocellular injury [Recovered/Resolved]
  - Hypotension [Recovered/Resolved]
  - Shock [Recovered/Resolved]
  - Renal failure [Recovered/Resolved]
  - Anaemia [Recovered/Resolved]
  - Altered state of consciousness [Recovered/Resolved]
  - Hypocalcaemia [Recovered/Resolved]
  - Intentional overdose [Unknown]
  - Prothrombin time ratio decreased [Recovered/Resolved]

NARRATIVE: CASE EVENT DATE: 201406
